FAERS Safety Report 15084848 (Version 1)
Quarter: 2018Q2

REPORT INFORMATION
  Report Type: Spontaneous
  Country: US (occurrence: US)
  Receive Date: 20180628
  Receipt Date: 20180628
  Transmission Date: 20180711
  Serious: Yes (Hospitalization)
  Sender: FDA-Public Use
  Company Number: US-VERTEX PHARMACEUTICALS-2018-004363

PATIENT
  Age: 28 Year
  Sex: Female

DRUGS (22)
  1. LORATADINE. [Concomitant]
     Active Substance: LORATADINE
  2. CHOICEFUL VITAMINS [Concomitant]
  3. CREON [Concomitant]
     Active Substance: PANCRELIPASE AMYLASE\PANCRELIPASE LIPASE\PANCRELIPASE PROTEASE
  4. SYMBICORT [Concomitant]
     Active Substance: BUDESONIDE\FORMOTEROL FUMARATE DIHYDRATE
  5. VITAMIN C [Concomitant]
     Active Substance: ASCORBIC ACID
  6. NASONEX [Concomitant]
     Active Substance: MOMETASONE FUROATE
  7. NOVOLOG [Concomitant]
     Active Substance: INSULIN ASPART
  8. PROAIR HFA [Concomitant]
     Active Substance: ALBUTEROL SULFATE
  9. SPIRIVA [Concomitant]
     Active Substance: TIOTROPIUM BROMIDE MONOHYDRATE
  10. IBUPROFEN. [Concomitant]
     Active Substance: IBUPROFEN
  11. ZINC SULFATE [Concomitant]
     Active Substance: ZINC SULFATE\ZINC SULFATE ANHYDROUS
  12. LANSOPRAZOLE. [Concomitant]
     Active Substance: LANSOPRAZOLE
  13. BUDESONIDE. [Concomitant]
     Active Substance: BUDESONIDE
  14. ALBUTEROL W/IPRATROPIUM [Concomitant]
     Active Substance: ALBUTEROL\IPRATROPIUM
  15. FERROUS SULFATE. [Concomitant]
     Active Substance: FERROUS SULFATE
  16. MEDROXYPROGESTERONE [Concomitant]
     Active Substance: MEDROXYPROGESTERONE
  17. SODIUM CHLORIDE. [Concomitant]
     Active Substance: SODIUM CHLORIDE
  18. ORKAMBI [Suspect]
     Active Substance: IVACAFTOR\LUMACAFTOR
     Indication: CYSTIC FIBROSIS
     Dosage: 2 DOSAGE FORM, BID
     Route: 048
     Dates: start: 20150827
  19. CAYSTON [Concomitant]
     Active Substance: AZTREONAM
  20. PULMOZYME [Concomitant]
     Active Substance: DORNASE ALFA
  21. TOBRAMYCIN. [Concomitant]
     Active Substance: TOBRAMYCIN
  22. VITAMIN E                          /00110501/ [Concomitant]
     Active Substance: TOCOPHEROL

REACTIONS (1)
  - Respiratory fume inhalation disorder [Not Recovered/Not Resolved]

NARRATIVE: CASE EVENT DATE: 20180621
